FAERS Safety Report 4752498-7 (Version None)
Quarter: 2005Q3

REPORT INFORMATION
  Report Type: 
  Country: None (occurrence: None)
  Receive Date: 20050825
  Receipt Date: 20050520
  Transmission Date: 20060218
  Serious: Yes (Other)
  Sender: FDA-Public Use
  Company Number: DE-ROCHE-405349

PATIENT
  Age: 28 Year
  Sex: Female
  Weight: 50 kg

DRUGS (5)
  1. CELLCEPT [Suspect]
     Route: 048
     Dates: start: 20030815
  2. TACROLIMUS [Concomitant]
     Dates: start: 20030815
  3. URBASON [Concomitant]
     Dates: start: 20030815
  4. RAMIPRIL [Concomitant]
     Indication: HYPERTENSION
  5. PANTOZOL [Concomitant]
     Indication: ANTACID THERAPY

REACTIONS (3)
  - ABORTION SPONTANEOUS [None]
  - DRUG EXPOSURE DURING PREGNANCY [None]
  - PREGNANCY [None]
